FAERS Safety Report 8051079-X (Version None)
Quarter: 2012Q1

REPORT INFORMATION
  Report Type: 
  Country: None (occurrence: None)
  Receive Date: 20120117
  Receipt Date: 20120111
  Transmission Date: 20120608
  Serious: Yes (Hospitalization)
  Sender: FDA-Public Use
  Company Number: PHHY2012FR002969

PATIENT
  Sex: Female

DRUGS (2)
  1. GLEEVEC [Suspect]
     Dosage: 300 MG, DAILY
     Dates: start: 20110801
  2. GLEEVEC [Suspect]
     Indication: CHRONIC MYELOID LEUKAEMIA
     Dosage: 1 DF (400 MG), DAILY
     Dates: start: 20100101

REACTIONS (3)
  - ASTHMATIC CRISIS [None]
  - DYSPNOEA [None]
  - DRUG INTOLERANCE [None]
